FAERS Safety Report 9287082 (Version 1)
Quarter: 2013Q2

REPORT INFORMATION
  Report Type: Spontaneous
  Country: US (occurrence: None)
  Receive Date: 20130508
  Receipt Date: 20130508
  Transmission Date: 20140414
  Serious: Yes (Other)
  Sender: FDA-Public Use
  Company Number: AUR-APL-2013-03772

PATIENT
  Age: 63 Year
  Sex: Female

DRUGS (1)
  1. PIOGLITAZONE (PIOGLITAZONE) [Suspect]

REACTIONS (2)
  - Drug hypersensitivity [None]
  - Oedema [None]
